FAERS Safety Report 4680924-0 (Version None)
Quarter: 2005Q2

REPORT INFORMATION
  Report Type: 
  Country: None (occurrence: None)
  Receive Date: 20050603
  Receipt Date: 20050526
  Transmission Date: 20051028
  Serious: Yes (Hospitalization)
  Sender: FDA-Public Use
  Company Number: PHBS2005JP07662

PATIENT
  Age: 52 Year
  Sex: Male

DRUGS (4)
  1. VOLTAREN [Suspect]
     Indication: POST PROCEDURAL PAIN
     Dosage: 25 MG/DAY
     Route: 048
     Dates: start: 20050525
  2. NU-LOTAN [Concomitant]
     Route: 048
  3. BASEN [Concomitant]
     Route: 048
  4. ALLOPURINOL [Concomitant]
     Route: 048

REACTIONS (3)
  - DEPRESSED LEVEL OF CONSCIOUSNESS [None]
  - FEELING ABNORMAL [None]
  - SHOCK [None]
